FAERS Safety Report 17359135 (Version 1)
Quarter: 2020Q1

REPORT INFORMATION
  Report Type: Report from Study
  Country: US (occurrence: US)
  Receive Date: 20200203
  Receipt Date: 20200203
  Transmission Date: 20200409
  Serious: Yes (Hospitalization)
  Sender: FDA-Public Use
  Company Number: US-ROCHE-2536588

PATIENT
  Age: 72 Year
  Sex: Male

DRUGS (9)
  1. OBINUTUZUMAB. [Suspect]
     Active Substance: OBINUTUZUMAB
     Dosage: ON CYCLE 1, DAY 2
     Route: 042
     Dates: start: 20190624
  2. VENETOCLAX. [Suspect]
     Active Substance: VENETOCLAX
     Indication: CHRONIC LYMPHOCYTIC LEUKAEMIA
     Dosage: 1-7 CYCLE 3
     Route: 048
     Dates: start: 20190624
  3. VENETOCLAX. [Suspect]
     Active Substance: VENETOCLAX
     Route: 048
     Dates: start: 20190624
  4. OBINUTUZUMAB. [Suspect]
     Active Substance: OBINUTUZUMAB
     Dosage: ON CYCLE 1 DAY 8, + CYCLE 1 DAY 5, CYCLE 2-6 DAY1
     Route: 042
     Dates: start: 20190624, end: 20190624
  5. OBINUTUZUMAB. [Suspect]
     Active Substance: OBINUTUZUMAB
     Indication: CHRONIC LYMPHOCYTIC LEUKAEMIA
     Dosage: ON CYCLE 1, DAY 1
     Route: 042
     Dates: start: 20190624, end: 20190624
  6. VENETOCLAX. [Suspect]
     Active Substance: VENETOCLAX
     Dosage: 15-21, CYCLE 3,
     Route: 048
     Dates: start: 20190624
  7. VENETOCLAX. [Suspect]
     Active Substance: VENETOCLAX
     Route: 048
     Dates: start: 20190624
  8. IBRUTINIB [Suspect]
     Active Substance: IBRUTINIB
     Indication: CHRONIC LYMPHOCYTIC LEUKAEMIA
     Route: 048
     Dates: start: 20190624, end: 20190624
  9. VENETOCLAX. [Suspect]
     Active Substance: VENETOCLAX
     Dosage: 8-14, CYCLE 3
     Route: 048
     Dates: start: 20190624

REACTIONS (1)
  - Pulmonary oedema [Recovered/Resolved]

NARRATIVE: CASE EVENT DATE: 20190624
